FAERS Safety Report 6435221-X (Version None)
Quarter: 2009Q4

REPORT INFORMATION
  Report Type: 
  Country: None (occurrence: None)
  Receive Date: 20091110
  Receipt Date: 20091028
  Transmission Date: 20100525
  Serious: Yes (Other)
  Sender: FDA-Public Use
  Company Number: US-ELI_LILLY_AND_COMPANY-US200910007980

PATIENT
  Sex: Female

DRUGS (6)
  1. CYMBALTA [Suspect]
     Indication: FIBROMYALGIA
     Dosage: 30 MG, UNK
     Dates: start: 20090929, end: 20090101
  2. LEXAPRO [Concomitant]
  3. LYRICA [Concomitant]
  4. SYNTHROID [Concomitant]
  5. VITAMIN D [Concomitant]
     Dosage: UNK, MONTHLY (1/M)
  6. CALCIUM [Concomitant]

REACTIONS (3)
  - ANXIETY DISORDER [None]
  - INSOMNIA [None]
  - INTENTIONAL SELF-INJURY [None]
